FAERS Safety Report 21422815 (Version 1)
Quarter: 2022Q4

REPORT INFORMATION
  Report Type: Spontaneous
  Country: IN (occurrence: IN)
  Receive Date: 20221007
  Receipt Date: 20221007
  Transmission Date: 20230113
  Serious: Yes (Other)
  Sender: FDA-Public Use
  Company Number: IN-LUPIN PHARMACEUTICALS INC.-2022-11724

PATIENT
  Age: 23 Year
  Sex: Female

DRUGS (11)
  1. RIFAMPIN [Suspect]
     Active Substance: RIFAMPIN
     Indication: Arachnoiditis
     Dosage: UNK
     Route: 065
  2. PYRAZINAMIDE [Suspect]
     Active Substance: PYRAZINAMIDE
     Indication: Arachnoiditis
     Dosage: UNK
     Route: 065
  3. ETHAMBUTOL [Suspect]
     Active Substance: ETHAMBUTOL HYDROCHLORIDE
     Indication: Arachnoiditis
     Dosage: UNK
     Route: 065
  4. CYCLOSERINE [Suspect]
     Active Substance: CYCLOSERINE
     Indication: Arachnoiditis
     Dosage: UNK
     Route: 065
  5. LEVOFLOXACIN [Suspect]
     Active Substance: LEVOFLOXACIN
     Indication: Arachnoiditis
     Dosage: UNK
     Route: 065
  6. ETHIONAMIDE [Suspect]
     Active Substance: ETHIONAMIDE
     Indication: Arachnoiditis
     Dosage: UNK
     Route: 065
  7. OFLOXACIN [Suspect]
     Active Substance: OFLOXACIN
     Indication: Arachnoiditis
     Dosage: UNK
     Route: 065
  8. ISONIAZID [Suspect]
     Active Substance: ISONIAZID
     Indication: Arachnoiditis
     Dosage: UNK
     Route: 065
  9. AMIKACIN [Suspect]
     Active Substance: AMIKACIN
     Indication: Arachnoiditis
     Dosage: UNK
     Route: 065
  10. DEXAMETHASONE [Suspect]
     Active Substance: DEXAMETHASONE
     Indication: Arachnoiditis
     Dosage: 12 MG, QD
     Route: 065
  11. CYCLOPHOSPHAMIDE [Concomitant]
     Active Substance: CYCLOPHOSPHAMIDE
     Indication: Arachnoiditis
     Dosage: 650 MG, 4 DOSES
     Route: 065

REACTIONS (3)
  - Therapy non-responder [Unknown]
  - Drug ineffective for unapproved indication [Unknown]
  - Off label use [Unknown]
